FAERS Safety Report 21345363 (Version 1)
Quarter: 2022Q3

REPORT INFORMATION
  Report Type: Spontaneous
  Country: US (occurrence: None)
  Receive Date: 20220916
  Receipt Date: 20220916
  Transmission Date: 20221027
  Serious: No
  Sender: FDA-Public Use
  Company Number: None

PATIENT
  Sex: 0

DRUGS (1)
  1. DEXTROAMPHETAMINE [Suspect]
     Active Substance: DEXTROAMPHETAMINE
     Indication: Attention deficit hyperactivity disorder
     Dates: start: 20220914, end: 20220916

REACTIONS (7)
  - Tremor [None]
  - Confusional state [None]
  - Balance disorder [None]
  - Memory impairment [None]
  - Fatigue [None]
  - Mood swings [None]
  - Loss of personal independence in daily activities [None]

NARRATIVE: CASE EVENT DATE: 20220916
